FAERS Safety Report 4469560-9 (Version None)
Quarter: 2004Q4

REPORT INFORMATION
  Report Type: 
  Country: None (occurrence: None)
  Receive Date: 20041008
  Receipt Date: 20040204
  Transmission Date: 20050328
  Serious: No
  Sender: FDA-Public Use
  Company Number: US-GLAXOSMITHKLINE-A0497133A

PATIENT
  Sex: Male

DRUGS (2)
  1. VENTOLIN [Suspect]
     Indication: ASTHMA
     Route: 055
  2. SEREVENT [Concomitant]
     Route: 055

REACTIONS (2)
  - HEART RATE DECREASED [None]
  - THERAPEUTIC RESPONSE DECREASED [None]
